FAERS Safety Report 10107046 (Version 2)
Quarter: 2014Q3

REPORT INFORMATION
  Report Type: Other
  Country: US (occurrence: US)
  Receive Date: 20140424
  Receipt Date: 20140716
  Transmission Date: 20150326
  Serious: Yes (Hospitalization, Other)
  Sender: FDA-Public Use
  Company Number: US-GSKPPD-2014GSK002266

PATIENT
  Age: 52 Year
  Sex: Female

DRUGS (7)
  1. NORVASC [Concomitant]
     Active Substance: AMLODIPINE BESYLATE
  2. DIOVAN [Concomitant]
     Active Substance: VALSARTAN
  3. MICARDIS [Concomitant]
     Active Substance: TELMISARTAN
  4. AVANDAMET [Suspect]
     Active Substance: METFORMIN HYDROCHLORIDE\ROSIGLITAZONE MALEATE
     Indication: DIABETES MELLITUS
     Dosage: 3/500MG
     Route: 048
     Dates: start: 200307, end: 200405
  5. TROPOL XL [Concomitant]
  6. VASOTEC [Concomitant]
     Active Substance: ENALAPRIL MALEATE
     Route: 042
  7. AVANDIA [Suspect]
     Active Substance: ROSIGLITAZONE MALEATE
     Indication: DIABETES MELLITUS
     Route: 048
     Dates: start: 200404, end: 200706

REACTIONS (1)
  - Cerebrovascular accident [Recovered/Resolved]

NARRATIVE: CASE EVENT DATE: 20050501
